FAERS Safety Report 5338688-3 (Version None)
Quarter: 2007Q2

REPORT INFORMATION
  Report Type: 
  Country: None (occurrence: None)
  Receive Date: 20070530
  Receipt Date: 20070524
  Transmission Date: 20071010
  Serious: Yes (Hospitalization)
  Sender: FDA-Public Use
  Company Number: A0651988A

PATIENT
  Age: 65 Year
  Sex: Female
  Weight: 78 kg

DRUGS (3)
  1. LAPATINIB [Suspect]
     Indication: BREAST CANCER
     Dosage: 1500MG PER DAY
     Route: 048
     Dates: start: 20070123
  2. CALCIUM CHLORIDE [Concomitant]
  3. MAGNESIUM SULFATE [Concomitant]

REACTIONS (10)
  - ANAEMIA [None]
  - BUNION [None]
  - ERYSIPELAS [None]
  - HYPERTHERMIA [None]
  - HYPOKALAEMIA [None]
  - INFECTION [None]
  - LYMPHOEDEMA [None]
  - PARONYCHIA [None]
  - SINUS TACHYCARDIA [None]
  - STREPTOCOCCAL SEPSIS [None]
